FAERS Safety Report 16536754 (Version 1)
Quarter: 2019Q3

REPORT INFORMATION
  Report Type: Spontaneous
  Country: US (occurrence: US)
  Receive Date: 20190706
  Receipt Date: 20190706
  Transmission Date: 20191004
  Serious: No
  Sender: FDA-Public Use
  Company Number: US-JNJFOC-20190702350

PATIENT
  Age: 48 Year
  Sex: Female
  Weight: 79.45 kg

DRUGS (1)
  1. ZYRTEC [Suspect]
     Active Substance: CETIRIZINE HYDROCHLORIDE
     Indication: SEASONAL ALLERGY
     Dosage: 1 PILL ONCE?LAST ADMINISTRATION DATE: 30/JUN/2019
     Route: 048
     Dates: start: 20190630

REACTIONS (5)
  - Product packaging quantity issue [Unknown]
  - Nausea [Recovered/Resolved]
  - Suspected product tampering [Unknown]
  - Coating in mouth [Recovered/Resolved]
  - Glossodynia [Recovered/Resolved]

NARRATIVE: CASE EVENT DATE: 20190630
